FAERS Safety Report 6184353-2 (Version None)
Quarter: 2009Q2

REPORT INFORMATION
  Report Type: 
  Country: None (occurrence: None)
  Receive Date: 20090508
  Receipt Date: 20090430
  Transmission Date: 20091009
  Serious: Yes (Other)
  Sender: FDA-Public Use
  Company Number: A0773906A

PATIENT
  Sex: Male
  Weight: 20.3 kg

DRUGS (3)
  1. ZINNAT [Suspect]
     Dosage: 5ML TWICE PER DAY
     Dates: start: 20090306, end: 20090310
  2. CELESTAMINE [Concomitant]
     Dosage: 2.5ML THREE TIMES PER DAY
     Dates: start: 20090306
  3. TYLENOL [Concomitant]
     Dates: start: 20090306, end: 20090308

REACTIONS (4)
  - HAEMATEMESIS [None]
  - OESOPHAGITIS [None]
  - PRODUCT QUALITY ISSUE [None]
  - RETCHING [None]
